FAERS Safety Report 7442591-2 (Version None)
Quarter: 2011Q2

REPORT INFORMATION
  Report Type: 
  Country: None (occurrence: None)
  Receive Date: 20110426
  Receipt Date: 20110426
  Transmission Date: 20111010
  Serious: Yes (Hospitalization)
  Sender: FDA-Public Use
  Company Number: None

PATIENT
  Sex: Female
  Weight: 86.1 kg

DRUGS (7)
  1. HERCEPTIN [Suspect]
     Dosage: 504 MG
     Dates: end: 20110414
  2. TAXOTERE [Suspect]
     Dosage: 140 MG
     Dates: end: 20110331
  3. CIPRO [Concomitant]
  4. MAGNESIUM OXIDE [Concomitant]
  5. VANCOMYCIN [Concomitant]
  6. CARBOPLATIN [Suspect]
     Dosage: 746 MG
     Dates: end: 20110331
  7. POTASSIUM CHLORIDE [Concomitant]

REACTIONS (10)
  - DEVICE BREAKAGE [None]
  - HYPOMAGNESAEMIA [None]
  - PALLOR [None]
  - PALPITATIONS [None]
  - DYSURIA [None]
  - BACK PAIN [None]
  - SEPSIS [None]
  - HYPOKALAEMIA [None]
  - TACHYCARDIA [None]
  - HEADACHE [None]
